FAERS Safety Report 5876140-7 (Version None)
Quarter: 2008Q3

REPORT INFORMATION
  Report Type: 
  Country: None (occurrence: None)
  Receive Date: 20080905
  Receipt Date: 20080826
  Transmission Date: 20090109
  Serious: Yes (Hospitalization, Disabling)
  Sender: FDA-Public Use
  Company Number: 2008-02889

PATIENT
  Age: 56 Year
  Sex: Male
  Weight: 55 kg

DRUGS (5)
  1. VELCADE [Suspect]
     Indication: MULTIPLE MYELOMA
     Dosage: 2 MG,
     Dates: start: 20080609, end: 20080821
  2. CNT0328(CNT0328) VIAL [Suspect]
     Indication: MULTIPLE MYELOMA
     Dosage: 3250 MG,
     Dates: start: 20080609, end: 20080721
  3. DEXAMETHASONE TAB [Suspect]
     Indication: MULTIPLE MYELOMA
     Dosage: 20 MG,
     Dates: start: 20080721, end: 20080821
  4. INNOHEP [Concomitant]
  5. VALACYCLOVIR [Concomitant]

REACTIONS (3)
  - ANOREXIA [None]
  - CHRONIC FATIGUE SYNDROME [None]
  - HAEMORRHOIDS [None]
